FAERS Safety Report 5447414-9 (Version None)
Quarter: 2007Q3

REPORT INFORMATION
  Report Type: 
  Country: None (occurrence: None)
  Receive Date: 20070910
  Receipt Date: 20070830
  Transmission Date: 20080115
  Serious: Yes (Hospitalization, Other)
  Sender: FDA-Public Use
  Company Number: GB-AMGEN-UK242117

PATIENT
  Age: 68 Year
  Sex: Female

DRUGS (10)
  1. NEULASTA [Suspect]
     Indication: CHEMOTHERAPY
  2. ARANESP [Suspect]
     Indication: ANAEMIA OF MALIGNANT DISEASE
  3. NEUPOGEN [Suspect]
     Indication: CHEMOTHERAPY
     Dates: end: 20070601
  4. NEUPOGEN [Suspect]
  5. CYCLOPHOSPHAMIDE [Concomitant]
  6. FOLIC ACID [Concomitant]
  7. FERROUS SULFATE TAB [Concomitant]
  8. CYCLOPHOSPHAMIDE [Concomitant]
  9. RITUXIMAB [Concomitant]
  10. FLUDARABINE PHOSPHATE [Concomitant]

REACTIONS (11)
  - APLASIA PURE RED CELL [None]
  - BIOPSY BONE MARROW ABNORMAL [None]
  - FATIGUE [None]
  - FEELING COLD [None]
  - INCORRECT DOSE ADMINISTERED [None]
  - INFLUENZA LIKE ILLNESS [None]
  - LOSS OF CONSCIOUSNESS [None]
  - MALAISE [None]
  - MEGAKARYOCYTES INCREASED [None]
  - THERAPEUTIC PRODUCT INEFFECTIVE [None]
  - VIRAL INFECTION [None]
